FAERS Safety Report 22525435 (Version 1)
Quarter: 2023Q2

REPORT INFORMATION
  Report Type: Spontaneous
  Country: HK (occurrence: HK)
  Receive Date: 20230606
  Receipt Date: 20230606
  Transmission Date: 20230721
  Serious: Yes (Hospitalization)
  Sender: FDA-Public Use
  Company Number: HK-SUN PHARMACEUTICAL INDUSTRIES LTD-2023RR-391946

PATIENT
  Age: 53 Year
  Sex: Female

DRUGS (12)
  1. RISPERIDONE [Suspect]
     Active Substance: RISPERIDONE
     Indication: Antipsychotic therapy
     Dosage: 3 MILLIGRAM
     Route: 065
  2. AMISULPRIDE [Suspect]
     Active Substance: AMISULPRIDE
     Indication: Antipsychotic therapy
     Dosage: 200 MILLIGRAM
     Route: 065
  3. DIAZEPAM [Suspect]
     Active Substance: DIAZEPAM
     Indication: Sedation
     Dosage: }30 MILLIGRAM
     Route: 065
  4. HALOPERIDOL [Suspect]
     Active Substance: HALOPERIDOL
     Indication: Antipsychotic therapy
     Dosage: 20 MILLIGRAM
     Route: 065
  5. LITHIUM [Suspect]
     Active Substance: LITHIUM
     Indication: Product used for unknown indication
     Dosage: 400 MILLIGRAM
  6. CLOZAPINE [Interacting]
     Active Substance: CLOZAPINE
     Indication: Antipsychotic therapy
     Dosage: 500 MILLIGRAM
     Route: 065
  7. TRIFLUOPERAZINE [Suspect]
     Active Substance: TRIFLUOPERAZINE HYDROCHLORIDE
     Indication: Antipsychotic therapy
     Dosage: 40 MILLIGRAM
     Route: 065
  8. VALPROATE SODIUM [Interacting]
     Active Substance: VALPROATE SODIUM
     Indication: Antipsychotic therapy
     Dosage: 1000 MILLIGRAM
     Route: 065
  9. PERICIAZINE [Suspect]
     Active Substance: PERICIAZINE
     Indication: Antipsychotic therapy
     Dosage: 40 MILLIGRAM
     Route: 065
  10. FLUPENTIXOL [Suspect]
     Active Substance: FLUPENTIXOL
     Indication: Antipsychotic therapy
     Dosage: 6 MILLIGRAM
     Route: 065
  11. PERPHENAZINE [Suspect]
     Active Substance: PERPHENAZINE
     Indication: Antipsychotic therapy
     Dosage: UNK
     Route: 065
  12. PIMOZIDE [Suspect]
     Active Substance: PIMOZIDE
     Indication: Antipsychotic therapy
     Dosage: UNK
     Route: 065

REACTIONS (5)
  - Drug ineffective [Unknown]
  - Pruritus [Unknown]
  - Polyuria [Unknown]
  - Drug interaction [Unknown]
  - Neutropenia [Unknown]
